FAERS Safety Report 18776705 (Version 2)
Quarter: 2021Q2

REPORT INFORMATION
  Report Type: Report from Study
  Country: CA (occurrence: CA)
  Receive Date: 20210122
  Receipt Date: 20210601
  Transmission Date: 20210717
  Serious: Yes (Hospitalization)
  Sender: FDA-Public Use
  Company Number: CA-NALPROPION PHARMACEUTICALS INC.-2021-012124

PATIENT

DRUGS (10)
  1. CONTRAVE [Suspect]
     Active Substance: BUPROPION HYDROCHLORIDE\NALTREXONE HYDROCHLORIDE
     Indication: WEIGHT CONTROL
     Dosage: 90MG/8MG; 2 TABLETS TWICE DAILY
     Route: 048
     Dates: start: 2020, end: 20210102
  2. ROSUVASTATIN. [Concomitant]
     Active Substance: ROSUVASTATIN
     Indication: BLOOD CHOLESTEROL ABNORMAL
     Dosage: 5 MG, 1 IN 1 D
     Route: 048
     Dates: end: 20210102
  3. PERINDOPRIL [Concomitant]
     Active Substance: PERINDOPRIL
     Indication: BLOOD PRESSURE ABNORMAL
     Dosage: 4 MG, 1 IN 1 D
     Route: 048
     Dates: start: 20210102
  4. AMLODIPINE [Concomitant]
     Active Substance: AMLODIPINE BESYLATE
     Indication: BLOOD PRESSURE ABNORMAL
     Dosage: 5 MG, 1 IN 1 D
     Route: 048
     Dates: start: 20210102
  5. CONTRAVE [Suspect]
     Active Substance: BUPROPION HYDROCHLORIDE\NALTREXONE HYDROCHLORIDE
     Dosage: 90MG/8MG; 2 TABLETS TWICE DAILY
     Route: 048
     Dates: start: 20210109
  6. APIXABAN [Concomitant]
     Active Substance: APIXABAN
     Indication: ANTICOAGULANT THERAPY
     Dosage: 5 MG, 1 IN 12 HR
     Route: 048
     Dates: start: 20210102
  7. RAMIPRIL. [Concomitant]
     Active Substance: RAMIPRIL
     Indication: BLOOD PRESSURE ABNORMAL
     Dosage: NOT SPECIFIED (10 MG, 1 IN 1 D)
     Route: 048
     Dates: start: 20210102
  8. ROSUVASTATIN. [Concomitant]
     Active Substance: ROSUVASTATIN
     Dosage: 5 MG, 1 IN 1 D
     Route: 048
     Dates: start: 20210426
  9. ALLOPURINOL. [Concomitant]
     Active Substance: ALLOPURINOL
     Indication: BLOOD URIC ACID INCREASED
     Dosage: 200 MG, 1 IN 1 D
     Route: 048
  10. ROSUVASTATIN. [Concomitant]
     Active Substance: ROSUVASTATIN
     Dosage: 10 MG, 1 IN 1 D
     Route: 048
     Dates: start: 20210102, end: 20210425

REACTIONS (9)
  - Cerebrovascular accident [Unknown]
  - Fatigue [Unknown]
  - Thirst [Not Recovered/Not Resolved]
  - Sleep apnoea syndrome [Recovering/Resolving]
  - Dysphagia [Not Recovered/Not Resolved]
  - Drug titration error [Unknown]
  - Therapy interrupted [Unknown]
  - Atrial fibrillation [Unknown]
  - Somnolence [Not Recovered/Not Resolved]

NARRATIVE: CASE EVENT DATE: 202101
